FAERS Safety Report 11660159 (Version 2)
Quarter: 2015Q4

REPORT INFORMATION
  Report Type: Spontaneous
  Country: CN (occurrence: CN)
  Receive Date: 20151026
  Receipt Date: 20151026
  Transmission Date: 20160304
  Serious: Yes (Other)
  Sender: FDA-Public Use
  Company Number: CN-009507513-1510CHN011459

PATIENT
  Age: 41 Year
  Sex: Male
  Weight: 59 kg

DRUGS (2)
  1. RIBAVIRIN. [Suspect]
     Active Substance: RIBAVIRIN
     Indication: VIRAL INFECTION
     Dosage: 0.3 G, THREE TIMES DAILY (TID)
     Route: 048
     Dates: start: 20150316, end: 20150518
  2. PEGINTERFERON ALFA-2B [Suspect]
     Active Substance: PEGINTERFERON ALFA-2B
     Indication: VIRAL INFECTION
     Dosage: 80 MICROGRAM, WEEKLY (QW)
     Route: 058
     Dates: start: 20150316, end: 20150518

REACTIONS (2)
  - Haemoglobin decreased [Unknown]
  - Erythropenia [Unknown]

NARRATIVE: CASE EVENT DATE: 20150420
